FAERS Safety Report 14948485 (Version 1)
Quarter: 2018Q2

REPORT INFORMATION
  Report Type: Spontaneous
  Country: US (occurrence: US)
  Receive Date: 20180529
  Receipt Date: 20180529
  Transmission Date: 20180711
  Serious: Yes (Other)
  Sender: FDA-Public Use
  Company Number: US-ASTRAZENECA-2018SE67320

PATIENT
  Sex: Female

DRUGS (2)
  1. FASLODEX [Suspect]
     Active Substance: FULVESTRANT
     Route: 030
  2. IBRANCE [Suspect]
     Active Substance: PALBOCICLIB
     Indication: BREAST CANCER FEMALE
     Dosage: 125 MG DAILY FOR 3 WEEKS AND THEN 1 WEEK OFF
     Route: 048
     Dates: start: 20180314

REACTIONS (4)
  - Fatigue [Unknown]
  - Hair texture abnormal [Unknown]
  - Alopecia [Unknown]
  - Malignant neoplasm progression [Unknown]
